FAERS Safety Report 6689998-9 (Version None)
Quarter: 2010Q2

REPORT INFORMATION
  Report Type: 
  Country: None (occurrence: None)
  Receive Date: 20100421
  Receipt Date: 20100408
  Transmission Date: 20101027
  Serious: Yes (Other)
  Sender: FDA-Public Use
  Company Number: PHHY2010CA22141

PATIENT
  Sex: Female

DRUGS (2)
  1. CLOZARIL [Suspect]
     Dosage: UNK
     Dates: start: 20001004, end: 20100410
  2. CHEMOTHERAPEUTICS NOS [Concomitant]
     Dosage: UNK
     Dates: start: 20100218

REACTIONS (5)
  - HYSTERECTOMY [None]
  - NEUTROPENIA [None]
  - UTERINE CANCER [None]
  - UTERINE POLYP [None]
  - WHITE BLOOD CELL COUNT DECREASED [None]
